FAERS Safety Report 24669300 (Version 1)
Quarter: 2024Q4

REPORT INFORMATION
  Report Type: Spontaneous
  Country: US (occurrence: US)
  Receive Date: 20241127
  Receipt Date: 20241127
  Transmission Date: 20250114
  Serious: No
  Sender: CELLTRION
  Company Number: US-CELLTRION INC.-2024US022275

PATIENT

DRUGS (3)
  1. YUFLYMA [Suspect]
     Active Substance: ADALIMUMAB-AATY
     Indication: Crohn^s disease
     Dosage: INJECT 1 (40MG) PEN. 28 DAY SUPPLY, EVERY OTHER WEEK, 40 MG, EVERY 2 WEEKS
     Route: 058
     Dates: start: 20240815
  2. YUFLYMA [Suspect]
     Active Substance: ADALIMUMAB-AATY
     Dosage: 40 MG, EVERY 2 WEEKS
     Route: 058
     Dates: start: 20240915
  3. YUFLYMA [Suspect]
     Active Substance: ADALIMUMAB-AATY
     Dosage: 40 MG, EVERY 2 WEEKS
     Route: 058
     Dates: start: 20241014

REACTIONS (5)
  - Loss of personal independence in daily activities [Recovered/Resolved]
  - Product distribution issue [Recovered/Resolved]
  - Product storage error [Unknown]
  - Therapy interrupted [Recovered/Resolved]
  - Product dose omission in error [Unknown]

NARRATIVE: CASE EVENT DATE: 20240912
